FAERS Safety Report 8477637-6 (Version None)
Quarter: 2012Q2

REPORT INFORMATION
  Report Type: 
  Country: None (occurrence: None)
  Receive Date: 20120620
  Receipt Date: 20120611
  Transmission Date: 20120825
  Serious: Yes (Other)
  Sender: FDA-Public Use
  Company Number: 2012SP032093

PATIENT
  Sex: Male

DRUGS (4)
  1. RIBAVIRIN [Suspect]
     Indication: HEPATITIS C
     Dates: start: 20080601, end: 20081231
  2. RIBAVIRIN [Suspect]
     Indication: HEPATITIS C
     Dates: start: 20120605
  3. PEGASYS [Suspect]
     Indication: HEPATITIS C
     Dates: start: 20080601, end: 20081231
  4. PEGASYS [Suspect]
     Indication: HEPATITIS C
     Dates: start: 20120605

REACTIONS (3)
  - MEMORY IMPAIRMENT [None]
  - LIVER TRANSPLANT [None]
  - HEPATIC NEOPLASM MALIGNANT [None]
